FAERS Safety Report 7530298-2 (Version None)
Quarter: 2011Q2

REPORT INFORMATION
  Report Type: 
  Country: None (occurrence: None)
  Receive Date: 20110607
  Receipt Date: 20110526
  Transmission Date: 20111010
  Serious: Yes (Life-Threatening, Other)
  Sender: FDA-Public Use
  Company Number: AR-MEDIMMUNE-MEDI-0013236

PATIENT
  Sex: Male
  Weight: 0.86 kg

DRUGS (1)
  1. SYNAGIS [Suspect]
     Route: 030

REACTIONS (3)
  - INFANTILE APNOEIC ATTACK [None]
  - CYANOSIS [None]
  - FEEDING DISORDER NEONATAL [None]
